FAERS Safety Report 7227103-0 (Version None)
Quarter: 2011Q1

REPORT INFORMATION
  Report Type: 
  Country: None (occurrence: None)
  Receive Date: 20110111
  Receipt Date: 20110111
  Transmission Date: 20110831
  Serious: Yes (Other)
  Sender: FDA-Public Use
  Company Number: None

PATIENT
  Age: 61 Year
  Sex: Male
  Weight: 95.2554 kg

DRUGS (2)
  1. BUPROPION SR 150 MG TAB SANDOZ [Suspect]
     Indication: DEPRESSION
     Dosage: 2 TABS IN PM DAILY PO
     Route: 048
     Dates: start: 20090828, end: 20090831
  2. WELLBUTRIN SR [Suspect]
     Indication: DEPRESSION
     Dosage: 1 TAB IN AM DAILY PO
     Route: 048
     Dates: start: 19980101, end: 20090828

REACTIONS (5)
  - DEPRESSION [None]
  - PRODUCT SUBSTITUTION ISSUE [None]
  - COLD SWEAT [None]
  - DISEASE RECURRENCE [None]
  - ANXIETY [None]
